FAERS Safety Report 6261250 (Version 2)
Quarter: 2020Q3

REPORT INFORMATION
  Report Type: Spontaneous
  Country: DE (occurrence: DE)
  Receive Date: 20070314
  Receipt Date: 20070316
  Transmission Date: 20201105
  Serious: Yes (Hospitalization)
  Sender: FDA-Public Use
  Company Number: DE-ROCHE-485448

PATIENT
  Age: 68 Year
  Sex: Female
  Weight: 98 kg

DRUGS (2)
  1. IBANDRONIC ACID. [Suspect]
     Active Substance: IBANDRONIC ACID
     Indication: OSTEOLYSIS
     Dosage: REPORTED DOSING REGIMEN: 6 MG/Q4.
     Route: 042
     Dates: start: 20040815, end: 20070315
  2. AREDIA [Suspect]
     Active Substance: PAMIDRONATE DISODIUM
     Indication: PLASMA CELL MYELOMA
     Dosage: REPORTED DOSING REGIMEN: 90 MG/Q4.
     Route: 042
     Dates: start: 19950615, end: 20040715

REACTIONS (1)
  - Osteonecrosis [Not Recovered/Not Resolved]

NARRATIVE: CASE EVENT DATE: 20070301
